FAERS Safety Report 6401367-5 (Version None)
Quarter: 2009Q4

REPORT INFORMATION
  Report Type: 
  Country: None (occurrence: None)
  Receive Date: 20091015
  Receipt Date: 20090904
  Transmission Date: 20100525
  Serious: No
  Sender: FDA-Public Use
  Company Number: US-BAYER-200932528NA

PATIENT
  Sex: Female

DRUGS (2)
  1. MIRENA [Suspect]
     Indication: DRUG USE FOR UNKNOWN INDICATION
     Dosage: CONTINUOUS
     Route: 015
  2. COUMADIN [Concomitant]

REACTIONS (3)
  - AMENORRHOEA [None]
  - MEDICAL DEVICE COMPLICATION [None]
  - VAGINAL DISCHARGE [None]
